FAERS Safety Report 8629436 (Version 4)
Quarter: 2014Q2

REPORT INFORMATION
  Report Type: Spontaneous
  Country: US (occurrence: US)
  Receive Date: 20120622
  Receipt Date: 20140422
  Transmission Date: 20141212
  Serious: Yes (Hospitalization, Disabling)
  Sender: FDA-Public Use
  Company Number: US-ASTRAZENECA-2012SE35662

PATIENT
  Age: 48 Year
  Sex: Male
  Weight: 104.3 kg

DRUGS (15)
  1. NEXIUM [Suspect]
     Indication: GASTROOESOPHAGEAL REFLUX DISEASE
     Route: 048
     Dates: start: 1999
  2. NEXIUM [Suspect]
     Indication: GASTROOESOPHAGEAL REFLUX DISEASE
     Route: 048
     Dates: start: 20050214
  3. NEXIUM [Suspect]
     Indication: GASTROOESOPHAGEAL REFLUX DISEASE
     Route: 048
     Dates: start: 20080408
  4. NEXIUM [Suspect]
     Indication: GASTROOESOPHAGEAL REFLUX DISEASE
     Route: 048
     Dates: start: 20080407
  5. HYDROCHLOROTHIAZIDE [Concomitant]
     Indication: BLOOD PRESSURE
     Dates: start: 20080408
  6. AMLODIPINE [Concomitant]
     Indication: BLOOD PRESSURE
     Dates: start: 20080408
  7. TOPROL XL [Concomitant]
     Indication: BLOOD PRESSURE
     Route: 048
     Dates: start: 20080408
  8. VICODIN [Concomitant]
     Indication: BONE PAIN
     Dates: start: 20080408
  9. PREVACID [Concomitant]
     Dates: start: 1999
  10. TUMS [Concomitant]
     Dosage: AS NEEDED
  11. ROLAIDS [Concomitant]
     Dosage: AS NEEDED
  12. CALCIUM [Concomitant]
     Indication: BONE DISORDER
  13. FISH OIL [Concomitant]
     Indication: BONE DISORDER
  14. OMEPRAZOLE [Concomitant]
  15. TRAMADOL [Concomitant]

REACTIONS (8)
  - Lumbar vertebral fracture [Unknown]
  - Spinal disorder [Unknown]
  - Bone density decreased [Unknown]
  - Osteoporosis [Unknown]
  - Osteopenia [Unknown]
  - Fall [Unknown]
  - Angina pectoris [Unknown]
  - Arthritis [Unknown]
